FAERS Safety Report 7077655-9 (Version None)
Quarter: 2010Q4

REPORT INFORMATION
  Report Type: 
  Country: None (occurrence: None)
  Receive Date: 20101101
  Receipt Date: 20101027
  Transmission Date: 20110411
  Serious: Yes (Other)
  Sender: FDA-Public Use
  Company Number: US-BAYER-201038679NA

PATIENT
  Age: 45 Year
  Sex: Female

DRUGS (2)
  1. ULTRAVIST 300 [Suspect]
     Indication: COMPUTERISED TOMOGRAM ABDOMEN
     Dosage: AS USED: 30 ML
     Dates: start: 20101027, end: 20101027
  2. ULTRAVIST 300 [Suspect]
     Dosage: AS USED: 100 ML
     Dates: start: 20101027, end: 20101027

REACTIONS (2)
  - CHEST PAIN [None]
  - VOMITING [None]
